FAERS Safety Report 5311461-8 (Version None)
Quarter: 2007Q2

REPORT INFORMATION
  Report Type: 
  Country: None (occurrence: None)
  Receive Date: 20070430
  Receipt Date: 20070426
  Transmission Date: 20071010
  Serious: Yes (Other)
  Sender: FDA-Public Use
  Company Number: US-GENENTECH-225800

PATIENT

DRUGS (5)
  1. RITUXAN [Suspect]
     Indication: NON-HODGKIN'S LYMPHOMA
  2. FLUDARA [Concomitant]
     Indication: NON-HODGKIN'S LYMPHOMA
  3. NOVANTRONE [Concomitant]
     Indication: NON-HODGKIN'S LYMPHOMA
  4. DECADRON [Concomitant]
     Indication: NON-HODGKIN'S LYMPHOMA
  5. CYTOXAN [Concomitant]
     Indication: NON-HODGKIN'S LYMPHOMA

REACTIONS (1)
  - EJECTION FRACTION ABNORMAL [None]
